FAERS Safety Report 25303435 (Version 1)
Quarter: 2025Q2

REPORT INFORMATION
  Report Type: Report from Study
  Country: US (occurrence: US)
  Receive Date: 20250512
  Receipt Date: 20250512
  Transmission Date: 20250717
  Serious: Yes (Other)
  Sender: MALLINCKRODT
  Company Number: US-MALLINCKRODT-MNK202502672

PATIENT
  Sex: Female

DRUGS (3)
  1. CORTICOTROPIN [Suspect]
     Active Substance: CORTICOTROPIN
     Indication: Eye inflammation
  2. METHOTREXATE [Suspect]
     Active Substance: METHOTREXATE
     Indication: Product used for unknown indication
  3. FOLIC ACID [Concomitant]
     Active Substance: FOLIC ACID

REACTIONS (10)
  - Eye inflammation [Unknown]
  - Condition aggravated [Unknown]
  - Cataract [Unknown]
  - Urinary tract infection [Unknown]
  - Seasonal allergy [Unknown]
  - Dry eye [Unknown]
  - Anxiety [Unknown]
  - Dyspepsia [Unknown]
  - Fatigue [Unknown]
  - Hunger [Unknown]
